FAERS Safety Report 4628517-5 (Version None)
Quarter: 2005Q2

REPORT INFORMATION
  Report Type: 
  Country: None (occurrence: None)
  Receive Date: 20050404
  Receipt Date: 20050323
  Transmission Date: 20051028
  Serious: Yes (Hospitalization, Disabling)
  Sender: FDA-Public Use
  Company Number: HQWYE351124MAR05

PATIENT
  Age: 61 Year
  Sex: Female

DRUGS (1)
  1. PREMELLE (CONJUGATED ESTROGENS/MEDROXYPROGESTERONE ACETATE, TABLET) [Suspect]
     Dosage: 0.625MG/2.5MG ORAL
     Route: 048
     Dates: start: 20030618, end: 20031209

REACTIONS (3)
  - CEREBRAL INFARCTION [None]
  - CEREBROVASCULAR ACCIDENT [None]
  - EPILEPSY [None]
